FAERS Safety Report 11989467 (Version 1)
Quarter: 2016Q1

REPORT INFORMATION
  Report Type: Spontaneous
  Country: US (occurrence: US)
  Receive Date: 20160202
  Receipt Date: 20160202
  Transmission Date: 20160526
  Serious: Yes (Other)
  Sender: FDA-Public Use
  Company Number: US-ASTRAZENECA-2016SE08718

PATIENT
  Sex: Male

DRUGS (1)
  1. CRESTOR [Suspect]
     Active Substance: ROSUVASTATIN CALCIUM
     Route: 048
     Dates: end: 2013

REACTIONS (6)
  - Muscle spasms [Not Recovered/Not Resolved]
  - Tendon injury [Unknown]
  - Muscle injury [Unknown]
  - Off label use [Unknown]
  - Chromaturia [Unknown]
  - Back pain [Unknown]
